FAERS Safety Report 21605639 (Version 1)
Quarter: 2022Q4

REPORT INFORMATION
  Report Type: Report from Study
  Country: JP (occurrence: JP)
  Receive Date: 20221116
  Receipt Date: 20221116
  Transmission Date: 20230113
  Serious: Yes (Hospitalization)
  Sender: FDA-Public Use
  Company Number: JP-SA-2022SA463267

PATIENT
  Age: 44 Year
  Sex: Female
  Weight: 50.4 kg

DRUGS (6)
  1. SARILUMAB [Suspect]
     Active Substance: SARILUMAB
     Indication: Rheumatoid arthritis
     Dosage: 200 MG, QOW
     Route: 058
     Dates: start: 20220405, end: 20220419
  2. METHOTREXATE [Suspect]
     Active Substance: METHOTREXATE
     Indication: Rheumatoid arthritis
     Dosage: 8 MG, QW
     Route: 048
     Dates: start: 20210512, end: 20220421
  3. IGURATIMOD [Suspect]
     Active Substance: IGURATIMOD
     Indication: Rheumatoid arthritis
     Dosage: 50 MG IN 2 DIVIDED DOSES
     Route: 048
     Dates: start: 20190318, end: 20220422
  4. FOLIC ACID [Concomitant]
     Active Substance: FOLIC ACID
     Indication: Prophylaxis
     Dosage: 100 MG ONCE A DAY
     Route: 048
     Dates: start: 20140409, end: 20220425
  5. SULFAMETHOXAZOLE\TRIMETHOPRIM [Concomitant]
     Active Substance: SULFAMETHOXAZOLE\TRIMETHOPRIM
     Indication: Prophylaxis
     Dosage: 0.5 TABLETS, ONCE A DAY
     Route: 048
     Dates: start: 20190218
  6. RABEPRAZOLE SODIUM [Concomitant]
     Active Substance: RABEPRAZOLE SODIUM
     Indication: Gastritis prophylaxis
     Dosage: 10 MG ONCE A DAY
     Route: 048
     Dates: start: 20180709

REACTIONS (4)
  - Organising pneumonia [Recovering/Resolving]
  - Dyspnoea [Recovering/Resolving]
  - Pneumothorax [Recovering/Resolving]
  - Arthralgia [Unknown]

NARRATIVE: CASE EVENT DATE: 20220420
